FAERS Safety Report 4492165-0 (Version None)
Quarter: 2004Q4

REPORT INFORMATION
  Report Type: 
  Country: None (occurrence: None)
  Receive Date: 20041101
  Receipt Date: 20041018
  Transmission Date: 20050328
  Serious: Yes (Other)
  Sender: FDA-Public Use
  Company Number: 2004080071

PATIENT
  Sex: Female

DRUGS (3)
  1. ZYRTEC [Suspect]
     Indication: SEASONAL ALLERGY
     Dosage: UNK (1 IN 1 D), ORAL
     Route: 048
     Dates: start: 20040917, end: 20040918
  2. CO-TYLENOL (CHLORPHENAMINE MALEATE, PARACETAMOL, PSEUDOEPHEDRINE HYDRO [Suspect]
     Indication: SEASONAL ALLERGY
     Dosage: UN (3 IN 1 D), ORAL
     Route: 048
     Dates: start: 20040918, end: 20040918
  3. ACETAMINOPHEN [Concomitant]

REACTIONS (4)
  - AMNESIA [None]
  - BLEEDING TIME ABNORMAL [None]
  - CONVULSION [None]
  - DRUG EXPOSURE DURING PREGNANCY [None]
